FAERS Safety Report 11401864 (Version 1)
Quarter: 2015Q3

REPORT INFORMATION
  Report Type: Spontaneous
  Country: US (occurrence: US)
  Receive Date: 20150821
  Receipt Date: 20150821
  Transmission Date: 20151125
  Serious: No
  Sender: FDA-Public Use
  Company Number: US-ROCHE-1381348

PATIENT
  Sex: Male
  Weight: 95.79 kg

DRUGS (11)
  1. RIBASPHERE [Suspect]
     Active Substance: RIBAVIRIN
     Dosage: EVERY EVENING
     Route: 048
     Dates: start: 20140312
  2. PEGASYS [Suspect]
     Active Substance: PEGINTERFERON ALFA-2A
     Indication: HEPATITIS C
     Route: 058
     Dates: start: 20140312
  3. NORCO [Concomitant]
     Active Substance: ACETAMINOPHEN\HYDROCODONE BITARTRATE
     Dosage: 10/325 MG
     Route: 065
  4. RIBASPHERE [Suspect]
     Active Substance: RIBAVIRIN
     Indication: HEPATITIS C
     Dosage: EVERY MORNING
     Route: 048
     Dates: start: 20140312
  5. SOVALDI [Suspect]
     Active Substance: SOFOSBUVIR
     Indication: HEPATITIS C
     Route: 048
     Dates: start: 20140312
  6. FISH OIL [Concomitant]
     Active Substance: FISH OIL
  7. LISINOPRIL. [Concomitant]
     Active Substance: LISINOPRIL
     Route: 048
  8. VITAMIN B12 [Concomitant]
     Active Substance: CYANOCOBALAMIN
     Route: 065
  9. ASPIRIN ^BAYER^ [Concomitant]
     Active Substance: ASPIRIN
     Route: 065
  10. PAXIL [Concomitant]
     Active Substance: PAROXETINE HYDROCHLORIDE
     Route: 048
  11. MOTRIN [Concomitant]
     Active Substance: IBUPROFEN
     Route: 065

REACTIONS (1)
  - Headache [Not Recovered/Not Resolved]
